FAERS Safety Report 13669236 (Version 5)
Quarter: 2019Q2

REPORT INFORMATION
  Report Type: Spontaneous
  Country: US (occurrence: US)
  Receive Date: 20170620
  Receipt Date: 20190402
  Transmission Date: 20190711
  Serious: Yes (Hospitalization, Other)
  Sender: FDA-Public Use
  Company Number: US-PFIZER INC-2017266964

PATIENT
  Age: 65 Year
  Sex: Female
  Weight: 73 kg

DRUGS (28)
  1. MIDODRINE [Concomitant]
     Active Substance: MIDODRINE
     Indication: HYPOTENSION
     Dosage: 2.5 MG, 3X/DAY
     Route: 048
     Dates: start: 201703
  2. FAMOTIDINE. [Concomitant]
     Active Substance: FAMOTIDINE
     Indication: PROPHYLAXIS
     Dosage: 20 MG, 2X/DAY
     Route: 048
     Dates: start: 201703
  3. FERROUS SULFATE. [Concomitant]
     Active Substance: FERROUS SULFATE
     Dosage: 1 DF, DAILY
     Route: 048
  4. WARFARIN [Concomitant]
     Active Substance: WARFARIN
     Indication: ANTICOAGULANT THERAPY
     Dosage: 5MG THIS FRI, NEXT MON WED AND FRI. 6 MG SUN, TUES. AND THURS THIS WEEK
     Route: 048
  5. KLOR-CON [Concomitant]
     Active Substance: POTASSIUM CHLORIDE
     Dosage: 1 DF, DAILY
     Route: 048
  6. REVATIO [Suspect]
     Active Substance: SILDENAFIL CITRATE
     Indication: PULMONARY HYPERTENSION
  7. ORTHO-NOVUM [Concomitant]
     Active Substance: ETHINYL ESTRADIOL\NORETHINDRONE
     Indication: GASTRITIS
     Dosage: 1 DF, DAILY (35MG/MCG TABLET ONE A DAY)
     Route: 048
  8. CARAFATE [Concomitant]
     Active Substance: SUCRALFATE
     Indication: GASTRITIS
     Dosage: 10 ML, 4X/DAY (BEFORE MEALS AND NIGHTLY)
     Route: 048
  9. ASPIRIN. [Concomitant]
     Active Substance: ASPIRIN
     Indication: CARDIAC DISORDER
     Dosage: 81 MG, 1X/DAY
     Route: 048
  10. SPIRONOLACTONE. [Concomitant]
     Active Substance: SPIRONOLACTONE
     Indication: CARDIAC FAILURE
     Dosage: 25 MG, 1X/DAY
     Dates: start: 2015
  11. ATORVASTATIN [Concomitant]
     Active Substance: ATORVASTATIN
     Indication: CARDIAC DISORDER
     Dosage: 1 DF, 1X/DAY
     Route: 048
  12. REVATIO [Suspect]
     Active Substance: SILDENAFIL CITRATE
     Indication: CARDIAC DISORDER
     Dosage: 20 MG, 3X/DAY
     Route: 048
     Dates: start: 2017
  13. FAMOTIDINE. [Concomitant]
     Active Substance: FAMOTIDINE
     Dosage: 2 DF, DAILY
     Route: 048
  14. FERROUS SULFATE. [Concomitant]
     Active Substance: FERROUS SULFATE
     Indication: MINERAL SUPPLEMENTATION
     Dosage: 325 MG, 1X/DAY (WITH DINNER)
  15. POTASSIUM CHLORIDE. [Concomitant]
     Active Substance: POTASSIUM CHLORIDE
     Dosage: 20 MEQ, 2X/DAY
     Route: 048
  16. SILDENAFIL CITRATE. [Suspect]
     Active Substance: SILDENAFIL CITRATE
     Indication: CARDIOMYOPATHY
     Dosage: 20 MG, 3X/DAY
     Route: 048
     Dates: start: 201703
  17. FUROSEMIDE. [Concomitant]
     Active Substance: FUROSEMIDE
     Dosage: 1 DF, DAILY
     Route: 048
  18. LEVOTHYROXINE. [Concomitant]
     Active Substance: LEVOTHYROXINE
     Indication: THYROIDECTOMY
     Dosage: 75 UG, 1X/DAY
     Route: 048
  19. LYRICA [Suspect]
     Active Substance: PREGABALIN
     Indication: MULTIPLE SCLEROSIS
     Dosage: 225 MG, 2X/DAY
     Route: 048
  20. LYRICA [Suspect]
     Active Substance: PREGABALIN
     Dosage: 375 MG, DAILY [150 MG IN AM 225 MG IN PM]
     Route: 048
  21. FUROSEMIDE. [Concomitant]
     Active Substance: FUROSEMIDE
     Indication: FLUID RETENTION
     Dosage: 40MG IN THE MORNING AND 20 MG IN THE EVENING
     Route: 048
  22. ATORVASTATIN [Concomitant]
     Active Substance: ATORVASTATIN
     Indication: BLOOD CHOLESTEROL ABNORMAL
  23. COLCHICINE. [Concomitant]
     Active Substance: COLCHICINE
     Indication: CARDIAC DISORDER
     Dosage: 6.6 MG, 1X/DAY
     Route: 048
     Dates: start: 201703
  24. ASPIRIN. [Concomitant]
     Active Substance: ASPIRIN
     Dosage: 81 MG, DAILY
     Route: 048
  25. SPIRONOLACTONE. [Concomitant]
     Active Substance: SPIRONOLACTONE
     Dosage: 1 DF, DAILY
     Route: 048
  26. LYRICA [Suspect]
     Active Substance: PREGABALIN
     Indication: NEURALGIA
     Dosage: 225 MG, 2X/DAY
     Route: 048
     Dates: start: 2005
  27. POLYMYXIN [Concomitant]
     Active Substance: POLYMYXIN
     Indication: ANTIBIOTIC THERAPY
     Dosage: 4 DROPS WITH EACH DRESSING CHANGE
     Dates: start: 201703
  28. WARFARIN [Concomitant]
     Active Substance: WARFARIN
     Dosage: 1 DF, DAILY
     Route: 048

REACTIONS (20)
  - Impaired gastric emptying [Recovering/Resolving]
  - Pulmonary oedema [Unknown]
  - Renal cancer [Unknown]
  - Condition aggravated [Unknown]
  - Cough [Unknown]
  - Dizziness [Unknown]
  - Renal cancer [Recovered/Resolved]
  - Pneumonia [Unknown]
  - Dyspnoea [Unknown]
  - Myocardial infarction [Recovered/Resolved with Sequelae]
  - Cardiac failure congestive [Unknown]
  - Malaise [Unknown]
  - Fatigue [Unknown]
  - Application site pain [Unknown]
  - Product use in unapproved indication [Unknown]
  - Nasopharyngitis [Unknown]
  - Gastrointestinal haemorrhage [Recovered/Resolved]
  - Device battery issue [Recovered/Resolved]
  - Application site haematoma [Unknown]
  - Full blood count decreased [Unknown]

NARRATIVE: CASE EVENT DATE: 200809
